FAERS Safety Report 25893994 (Version 1)
Quarter: 2025Q4

REPORT INFORMATION
  Report Type: Spontaneous
  Country: US (occurrence: US)
  Receive Date: 20251008
  Receipt Date: 20251008
  Transmission Date: 20260117
  Serious: No
  Sender: BIOGEN
  Company Number: US-BIOGEN-2025BI01321748

PATIENT
  Sex: Male

DRUGS (1)
  1. TYSABRI [Suspect]
     Active Substance: NATALIZUMAB
     Indication: Multiple sclerosis
     Dosage: INFUSED OVER 1 HOUR
     Route: 050
     Dates: start: 20170811

REACTIONS (5)
  - Therapeutic response shortened [Unknown]
  - Muscle spasticity [Unknown]
  - Fatigue [Unknown]
  - Peroneal nerve palsy [Unknown]
  - Fall [Recovered/Resolved]
